FAERS Safety Report 25038800 (Version 1)
Quarter: 2025Q1

REPORT INFORMATION
  Report Type: Spontaneous
  Country: US (occurrence: US)
  Receive Date: 20250304
  Receipt Date: 20250304
  Transmission Date: 20250408
  Serious: Yes (Other)
  Sender: NOVO NORDISK
  Company Number: US-NOVOPROD-1381220

PATIENT
  Sex: Female
  Weight: 68.027 kg

DRUGS (1)
  1. OZEMPIC [Suspect]
     Active Substance: SEMAGLUTIDE
     Indication: Weight control

REACTIONS (8)
  - Melaena [Unknown]
  - Constipation [Unknown]
  - Vomiting [Unknown]
  - Asthenia [Unknown]
  - Feeding disorder [Unknown]
  - Hypertension [Unknown]
  - Photophobia [Unknown]
  - Intentional overdose [Unknown]
